FAERS Safety Report 24404884 (Version 1)
Quarter: 2024Q4

REPORT INFORMATION
  Report Type: Spontaneous
  Country: US (occurrence: None)
  Receive Date: 20241004
  Receipt Date: 20241004
  Transmission Date: 20250114
  Serious: Yes (Hospitalization)
  Sender: Public
  Company Number: None

PATIENT
  Age: 76 Year
  Sex: Male
  Weight: 80 kg

DRUGS (2)
  1. WARFARIN SODIUM [Suspect]
     Active Substance: WARFARIN SODIUM
     Indication: Atrial fibrillation
     Dosage: 3.00 MG DAILY ORAL
     Route: 048
  2. ENOXAPARIN [Suspect]
     Active Substance: ENOXAPARIN
     Indication: Atrial fibrillation
     Dosage: 80.00 MG TWICE A DAY SUBCUTANEOUS?
     Route: 058

REACTIONS (8)
  - Intestinal mass [None]
  - Colon cancer [None]
  - Colon cancer [None]
  - Rectal haemorrhage [None]
  - Post procedural haemorrhage [None]
  - Haemoglobin decreased [None]
  - Red blood cell transfusion [None]
  - Gastrointestinal haemorrhage [None]

NARRATIVE: CASE EVENT DATE: 20240514
